FAERS Safety Report 5076948-4 (Version None)
Quarter: 2006Q3

REPORT INFORMATION
  Report Type: 
  Country: None (occurrence: None)
  Receive Date: 20060810
  Receipt Date: 20060802
  Transmission Date: 20061208
  Serious: Yes (Other)
  Sender: FDA-Public Use
  Company Number: US-SANOFI-SYNTHELABO-A03200604853

PATIENT
  Age: 32 Year
  Sex: Male

DRUGS (1)
  1. AMBIEN [Suspect]
     Indication: SLEEP DISORDER
     Dosage: TOOK 5 TIMES THE RECOMMENDED DOSE
     Route: 048

REACTIONS (11)
  - AMNESIA [None]
  - COORDINATION ABNORMAL [None]
  - DISORIENTATION [None]
  - DRUG ABUSER [None]
  - DRUG LEVEL INCREASED [None]
  - IMPAIRED DRIVING ABILITY [None]
  - INCOHERENT [None]
  - INTENTIONAL OVERDOSE [None]
  - ROAD TRAFFIC ACCIDENT [None]
  - SLEEP TALKING [None]
  - SLEEP WALKING [None]
